FAERS Safety Report 7770456-5 (Version None)
Quarter: 2011Q3

REPORT INFORMATION
  Report Type: 
  Country: None (occurrence: None)
  Receive Date: 20110922
  Receipt Date: 20100517
  Transmission Date: 20111222
  Serious: Yes (Hospitalization)
  Sender: FDA-Public Use
  Company Number: US-ASTRAZENECA-2008UW07358

PATIENT
  Age: 14720 Day
  Sex: Male
  Weight: 93 kg

DRUGS (11)
  1. NEURONTIN [Concomitant]
     Dates: start: 20021007
  2. PREVACID [Concomitant]
     Route: 048
     Dates: start: 20060708
  3. TRILEPTAL [Concomitant]
     Route: 048
     Dates: start: 20060708
  4. WELLBUTRIN [Concomitant]
     Route: 048
     Dates: start: 20021007
  5. ASPIRIN [Concomitant]
     Route: 048
     Dates: start: 20060708
  6. MAGNESIUM OXIDE [Concomitant]
     Route: 048
     Dates: start: 20060708
  7. GEODON [Concomitant]
     Route: 048
     Dates: start: 20060708
  8. SEROQUEL [Suspect]
     Route: 048
     Dates: start: 20021007
  9. PAXIL [Concomitant]
     Route: 048
     Dates: start: 20021007
  10. BACLOFEN [Concomitant]
     Dates: start: 20021007
  11. TOPROL-XL [Concomitant]
     Dosage: 50 MG TO 200 MG
     Route: 048
     Dates: start: 20021007

REACTIONS (2)
  - TYPE 2 DIABETES MELLITUS [None]
  - HYPOGLYCAEMIA [None]
